FAERS Safety Report 5570025-1 (Version None)
Quarter: 2007Q4

REPORT INFORMATION
  Report Type: 
  Country: None (occurrence: None)
  Receive Date: 20071220
  Receipt Date: 20071210
  Transmission Date: 20080405
  Serious: Yes (Other)
  Sender: FDA-Public Use
  Company Number: US-PFIZER INC-2007092238

PATIENT
  Age: 50 Year
  Sex: Female
  Weight: 61.2 kg

DRUGS (1)
  1. CHANTIX [Suspect]
     Indication: SMOKING CESSATION THERAPY

REACTIONS (4)
  - DEPRESSION [None]
  - DRUG WITHDRAWAL SYNDROME [None]
  - HALLUCINATION, VISUAL [None]
  - SUICIDAL IDEATION [None]
